FAERS Safety Report 25536895 (Version 1)
Quarter: 2025Q3

REPORT INFORMATION
  Report Type: Spontaneous
  Country: CN (occurrence: CN)
  Receive Date: 20250710
  Receipt Date: 20250710
  Transmission Date: 20251020
  Serious: Yes (Hospitalization)
  Sender: BEIGENE
  Company Number: CN-BEIGENE-BGN-2025-010729

PATIENT
  Age: 70 Year
  Weight: 60 kg

DRUGS (2)
  1. TISLELIZUMAB [Suspect]
     Active Substance: TISLELIZUMAB
     Indication: Renal cancer metastatic
     Dosage: 200 MILLIGRAM, QD
  2. PAZOPANIB [Suspect]
     Active Substance: PAZOPANIB
     Indication: Renal cancer metastatic
     Dosage: 800 MILLIGRAM, Q2WK

REACTIONS (4)
  - Liver injury [Recovering/Resolving]
  - White blood cell count decreased [Recovering/Resolving]
  - Platelet count decreased [Recovering/Resolving]
  - Diarrhoea [Recovering/Resolving]
